FAERS Safety Report 17386511 (Version 2)
Quarter: 2020Q1

REPORT INFORMATION
  Report Type: Report from Study
  Country: US (occurrence: US)
  Receive Date: 20200206
  Receipt Date: 20200212
  Transmission Date: 20200409
  Serious: Yes (Hospitalization, Other)
  Sender: FDA-Public Use
  Company Number: US-AMGEN-USASL2019182670

PATIENT
  Age: 57 Year
  Sex: Female

DRUGS (4)
  1. REPATHA [Suspect]
     Active Substance: EVOLOCUMAB
     Indication: HYPERCHOLESTEROLAEMIA
  2. ISOSORBIDE. [Concomitant]
     Active Substance: ISOSORBIDE
     Dosage: 30 MILLIGRAM, QD
     Dates: start: 20200128
  3. ISOSORBIDE. [Concomitant]
     Active Substance: ISOSORBIDE
     Indication: CHEST PAIN
     Dosage: 60 MILLIGRAM, QD
     Dates: end: 20200128
  4. REPATHA [Suspect]
     Active Substance: EVOLOCUMAB
     Indication: BLOOD CHOLESTEROL ABNORMAL
     Dosage: 140 MILLIGRAM, Q2WK
     Route: 065
     Dates: start: 2019

REACTIONS (8)
  - Chest pain [Unknown]
  - Lower limb fracture [Unknown]
  - Influenza like illness [Unknown]
  - Asthenia [Unknown]
  - Road traffic accident [Unknown]
  - Blood pressure decreased [Not Recovered/Not Resolved]
  - Dyspnoea [Unknown]
  - Ear discomfort [Unknown]

NARRATIVE: CASE EVENT DATE: 2019
